FAERS Safety Report 5825606-4 (Version None)
Quarter: 2008Q3

REPORT INFORMATION
  Report Type: 
  Country: None (occurrence: None)
  Receive Date: 20080729
  Receipt Date: 20080729
  Transmission Date: 20090109
  Serious: Yes (Other)
  Sender: FDA-Public Use
  Company Number: A0739643A

PATIENT
  Age: 54 Year
  Sex: Female

DRUGS (3)
  1. AVAMYS [Suspect]
     Indication: MULTIPLE ALLERGIES
     Dosage: 1SPR AS DIRECTED
     Route: 045
  2. MICARDIS [Concomitant]
     Dosage: 80MG PER DAY
     Route: 048
  3. LOCACORTEN EARDROPS [Concomitant]
     Route: 001

REACTIONS (1)
  - URTICARIA [None]
